FAERS Safety Report 9604745 (Version 3)
Quarter: 2013Q4

REPORT INFORMATION
  Report Type: Spontaneous
  Country: US (occurrence: US)
  Receive Date: 20131008
  Receipt Date: 20131015
  Transmission Date: 20140711
  Serious: No
  Sender: FDA-Public Use
  Company Number: US-PFIZER INC-2013286242

PATIENT
  Sex: Male

DRUGS (1)
  1. XALKORI [Suspect]
     Dosage: UNK

REACTIONS (3)
  - Ocular toxicity [Unknown]
  - Bradycardia [Unknown]
  - Blood testosterone decreased [Unknown]
